FAERS Safety Report 8614373-7 (Version None)
Quarter: 2012Q3

REPORT INFORMATION
  Report Type: 
  Country: None (occurrence: None)
  Receive Date: 20120823
  Receipt Date: 20120815
  Transmission Date: 20120928
  Serious: Yes (Death)
  Sender: FDA-Public Use
  Company Number: JP-SANOFI-AVENTIS-200812066JP

PATIENT
  Age: 67 Year
  Sex: Male

DRUGS (6)
  1. CISPLATIN [Suspect]
     Dosage: DOSE: DRUG INFUSION WAS ADMINISTERED ON DAYS 1 AND 29 FOR 2 H
     Route: 042
     Dates: start: 20000101
  2. DOCETAXEL [Suspect]
     Dosage: DOSE: DRUG WAS ADMINISTERED ON DAY 1 AND 29 FOR 1 H.
     Route: 042
     Dates: start: 20000101
  3. THERAPEUTIC RADIOPHARMACEUTICALS [Suspect]
     Indication: NON-SMALL CELL LUNG CANCER STAGE III
     Dosage: DOSE: 2 GY/DAY IN 5 CONSECUTIVE DAYS PER WEEK
     Route: 065
     Dates: start: 20000101, end: 20000101
  4. CISPLATIN [Suspect]
     Indication: NON-SMALL CELL LUNG CANCER STAGE III
     Dosage: DOSE: DRUG INFUSION WAS ADMINISTERED ON DAYS 1 AND 29 FOR 2 H
     Route: 042
     Dates: start: 20000101, end: 20000101
  5. THERAPEUTIC RADIOPHARMACEUTICALS [Suspect]
     Dosage: DOSE: 2 GY/DAY
     Route: 065
     Dates: start: 20000101
  6. DOCETAXEL [Suspect]
     Indication: NON-SMALL CELL LUNG CANCER STAGE III
     Dosage: DOSE: DRUG WAS ADMINISTERED ON DAY 1 AND 29 FOR 1 H.
     Route: 042
     Dates: start: 20000101, end: 20000101

REACTIONS (3)
  - RESPIRATORY FAILURE [None]
  - HYPOXIA [None]
  - PNEUMONITIS [None]
